FAERS Safety Report 13030131 (Version 2)
Quarter: 2016Q4

REPORT INFORMATION
  Report Type: Spontaneous
  Country: IT (occurrence: IT)
  Receive Date: 20161215
  Receipt Date: 20161228
  Transmission Date: 20170207
  Serious: Yes (Hospitalization)
  Sender: FDA-Public Use
  Company Number: IT-TEVA-719572ACC

PATIENT
  Age: 37 Year
  Sex: Female
  Weight: 39 kg

DRUGS (3)
  1. PROPAFENONE. [Suspect]
     Active Substance: PROPAFENONE
     Route: 048
  2. PROPAFENONE. [Suspect]
     Active Substance: PROPAFENONE
     Indication: ARRHYTHMIA
     Route: 048
  3. PROPAFENONE. [Suspect]
     Active Substance: PROPAFENONE
     Dosage: 450 MG, QD
     Route: 048

REACTIONS (6)
  - Fatigue [Unknown]
  - Platypnoea [Unknown]
  - Hypotension [Unknown]
  - Cyanosis [Unknown]
  - Presyncope [Unknown]
  - Overdose [Unknown]
